FAERS Safety Report 7128824-0 (Version None)
Quarter: 2010Q4

REPORT INFORMATION
  Report Type: 
  Country: None (occurrence: None)
  Receive Date: 20101130
  Receipt Date: 20101118
  Transmission Date: 20110411
  Serious: Yes (Hospitalization)
  Sender: FDA-Public Use
  Company Number: US-ROCHE-743576

PATIENT
  Sex: Female
  Weight: 57.2 kg

DRUGS (8)
  1. ACTEMRA [Suspect]
     Indication: RHEUMATOID ARTHRITIS
     Dosage: DOSE: 4 MG/KG; FORM: INFUSION
     Route: 042
     Dates: start: 20101013
  2. SAVELLA [Concomitant]
  3. PREDNISONE [Concomitant]
  4. PLAQUENIL [Concomitant]
  5. TRIMEDAL [Concomitant]
  6. VOLTAREN [Concomitant]
     Dosage: DRUG REPORTED AS VOLTARYEN GEL
  7. FLECTOR [Concomitant]
     Dosage: DRUG: FLECTOR PATCH
  8. XANAX [Concomitant]

REACTIONS (4)
  - COLITIS [None]
  - DEHYDRATION [None]
  - DIARRHOEA [None]
  - WEIGHT DECREASED [None]
